FAERS Safety Report 7197185-3 (Version None)
Quarter: 2010Q4

REPORT INFORMATION
  Report Type: 
  Country: None (occurrence: None)
  Receive Date: 20101224
  Receipt Date: 20101222
  Transmission Date: 20110411
  Serious: Yes (Death)
  Sender: FDA-Public Use
  Company Number: PHHO2010FR19548

PATIENT
  Sex: Female

DRUGS (1)
  1. AMN107 [Suspect]
     Indication: MALIGNANT MELANOMA
     Dosage: 400 MG, BID
     Route: 048
     Dates: start: 20100727

REACTIONS (1)
  - SUDDEN DEATH [None]
